FAERS Safety Report 18432120 (Version 1)
Quarter: 2020Q4

REPORT INFORMATION
  Report Type: Spontaneous
  Country: JP (occurrence: JP)
  Receive Date: 20201027
  Receipt Date: 20201027
  Transmission Date: 20210114
  Serious: Yes (Other)
  Sender: FDA-Public Use
  Company Number: JP-PFIZER INC-2020407707

PATIENT
  Age: 69 Year
  Sex: Male

DRUGS (2)
  1. VFEND [Suspect]
     Active Substance: VORICONAZOLE
     Indication: BRONCHOPULMONARY ASPERGILLOSIS
     Dosage: 800 MG, DAILY
     Route: 042
     Dates: start: 20201008, end: 20201008
  2. VFEND [Suspect]
     Active Substance: VORICONAZOLE
     Dosage: 560 MG, DAILY
     Route: 042
     Dates: start: 20201009

REACTIONS (2)
  - Hypoglycaemia [Recovered/Resolved]
  - Drug level increased [Unknown]

NARRATIVE: CASE EVENT DATE: 202010
